FAERS Safety Report 9727438 (Version 1)
Quarter: 2013Q4

REPORT INFORMATION
  Report Type: Spontaneous
  Country: NL (occurrence: None)
  Receive Date: 20131129
  Receipt Date: 20131129
  Transmission Date: 20140711
  Serious: Yes (Death, Hospitalization)
  Sender: FDA-Public Use
  Company Number: 2013AP009963

PATIENT
  Sex: Female

DRUGS (5)
  1. PANTOPRAZOLE (PANTOPRAZOLE) [Suspect]
  2. DICLOFENAC (DICLOFENAC) [Suspect]
  3. DABIGATRAN ETEXILATE [Suspect]
     Indication: PROPHYLAXIS
     Dosage: 150 MG; QD
  4. SIMVASTATIN (SIMAVASTATIN) [Concomitant]
  5. FERROUS FUMARATE (FERROUS FUMARATE) [Concomitant]

REACTIONS (3)
  - Thrombocytopenia [None]
  - Cerebral infarction [None]
  - Haemorrhagic transformation stroke [None]
